FAERS Safety Report 10176508 (Version 1)
Quarter: 2014Q2

REPORT INFORMATION
  Report Type: Spontaneous
  Country: US (occurrence: US)
  Receive Date: 20140516
  Receipt Date: 20140516
  Transmission Date: 20141212
  Serious: Yes (Other)
  Sender: FDA-Public Use
  Company Number: US-BAYER-2014-069476

PATIENT
  Sex: Female

DRUGS (4)
  1. CITRACAL PETITES [Suspect]
     Dosage: 1 DF, TID
     Route: 048
  2. CITRACAL PETITES [Suspect]
     Dosage: 1 DF, TID
     Route: 048
  3. BAYER ASPIRIN REGIMEN ADULT LOW STRENGTH [Concomitant]
  4. NEXIUM [Concomitant]

REACTIONS (2)
  - Choking [Recovered/Resolved]
  - Oral disorder [Recovered/Resolved]
